FAERS Safety Report 21350851 (Version 1)
Quarter: 2022Q3

REPORT INFORMATION
  Report Type: Spontaneous
  Country: FR (occurrence: FR)
  Receive Date: 20220919
  Receipt Date: 20220919
  Transmission Date: 20221027
  Serious: Yes (Death, Hospitalization, Other)
  Sender: FDA-Public Use
  Company Number: FR-JAZZ-2022-FR-021742

PATIENT
  Age: 57 Year
  Sex: Female
  Weight: 76 kg

DRUGS (28)
  1. PROPOFOL [Suspect]
     Active Substance: PROPOFOL
     Indication: Product used for unknown indication
     Dosage: 20 MG/D
     Route: 065
     Dates: start: 20220620, end: 20220620
  2. METRONIDAZOLE [Suspect]
     Active Substance: METRONIDAZOLE
     Indication: Product used for unknown indication
     Dosage: 1 UNIT, TID
     Route: 065
     Dates: start: 20220620, end: 20220620
  3. SUFENTANIL [Suspect]
     Active Substance: SUFENTANIL
     Indication: Product used for unknown indication
     Dosage: 250 UG/D
     Route: 065
     Dates: start: 20220620, end: 20220620
  4. PENTACARINAT [Suspect]
     Active Substance: PENTAMIDINE ISETHIONATE
     Indication: Infection prophylaxis
     Dosage: 1/MONTH
     Route: 065
     Dates: start: 20220619, end: 20220620
  5. NEFOPAM [Suspect]
     Active Substance: NEFOPAM
     Indication: Pain
     Dosage: 60 MILLIGRAM, QD
     Route: 065
     Dates: start: 20220619, end: 20220620
  6. LINEZOLID [Suspect]
     Active Substance: LINEZOLID
     Indication: Product used for unknown indication
     Dosage: 1 UNIT, BID
     Route: 065
     Dates: start: 20220620, end: 20220620
  7. CELLCEPT [Suspect]
     Active Substance: MYCOPHENOLATE MOFETIL
     Indication: Prophylaxis against transplant rejection
     Dosage: 1 UNIT, BID
     Route: 065
     Dates: start: 20220619, end: 20220620
  8. PANTOPRAZOLE [Suspect]
     Active Substance: PANTOPRAZOLE
     Indication: Abdominal pain upper
     Dosage: 1 UNIT AT NIGHT
     Route: 065
     Dates: start: 20220619, end: 20220620
  9. MIDAZOLAM [Suspect]
     Active Substance: MIDAZOLAM
     Indication: Product used for unknown indication
     Dosage: 50 MG/D
     Route: 065
     Dates: start: 20220620, end: 20220620
  10. NPLATE [Suspect]
     Active Substance: ROMIPLOSTIM
     Indication: Immune thrombocytopenia
     Dosage: 70 UG/WEEK
     Route: 065
  11. CELLCEPT [Suspect]
     Active Substance: MYCOPHENOLATE MOFETIL
     Indication: Prophylaxis against transplant rejection
     Dosage: 0.5 UNIT, BID
     Route: 065
     Dates: start: 20220616
  12. TACROLIMUS [Suspect]
     Active Substance: TACROLIMUS
     Indication: Prophylaxis against transplant rejection
     Dosage: 3 UNIT, QD
     Route: 065
     Dates: start: 20220522
  13. TACROLIMUS [Suspect]
     Active Substance: TACROLIMUS
     Dosage: 3 UNIT, QD
     Route: 065
     Dates: start: 20220619, end: 20220620
  14. METHYLPREDNISOLONE [Suspect]
     Active Substance: METHYLPREDNISOLONE
     Indication: Blood disorder
     Dosage: 70MG/DAY
     Route: 065
     Dates: start: 20220615
  15. METHYLPREDNISOLONE [Suspect]
     Active Substance: METHYLPREDNISOLONE
     Dosage: UNK
     Route: 065
     Dates: start: 20220619, end: 20220620
  16. URSODIOL [Suspect]
     Active Substance: URSODIOL
     Indication: Venoocclusive disease
     Dosage: 0.5, TID
     Route: 065
     Dates: start: 20220428
  17. DEFITELIO [Suspect]
     Active Substance: DEFIBROTIDE SODIUM
     Indication: Venoocclusive disease
     Dosage: 200 MG/2.5 ML, 450 MG EVERY 6 HOURS
     Route: 065
     Dates: start: 20220615
  18. MORPHINE [Suspect]
     Active Substance: MORPHINE
     Indication: Pain
     Dosage: 10MG/24H
     Route: 065
     Dates: start: 20220619
  19. PHLOROGLUCINOL [Suspect]
     Active Substance: PHLOROGLUCINOL
     Indication: Pain
     Dosage: 1 UNIT, TID
     Route: 065
     Dates: start: 20220619, end: 20220620
  20. AMBISOME [Suspect]
     Active Substance: AMPHOTERICIN B
     Indication: Fungal infection
     Dosage: 210 MILLIGRAM, QD
     Route: 065
     Dates: start: 20220619, end: 20220620
  21. NOREPINEPHRINE [Suspect]
     Active Substance: NOREPINEPHRINE
     Indication: Hypertension
     Dosage: UNK
     Route: 065
     Dates: start: 20220619, end: 20220620
  22. METOCLOPRAMIDE [Suspect]
     Active Substance: METOCLOPRAMIDE
     Indication: Nausea
     Dosage: 1 UNIT, BID
     Route: 065
     Dates: start: 20220619, end: 20220620
  23. FUROSEMIDE [Suspect]
     Active Substance: FUROSEMIDE
     Indication: Product used for unknown indication
     Dosage: UNK
     Route: 065
     Dates: start: 20220619, end: 20220620
  24. CEFEPIME [Suspect]
     Active Substance: CEFEPIME HYDROCHLORIDE
     Indication: Febrile bone marrow aplasia
     Dosage: 1 UNIT, TID
     Route: 065
     Dates: start: 20220619, end: 20220620
  25. TRAMADOL HYDROCHLORIDE [Concomitant]
     Active Substance: TRAMADOL HYDROCHLORIDE
     Indication: Pain
     Dosage: 100 MILLIGRAM, EVERY 6 HOURS
     Route: 065
     Dates: start: 20220518, end: 20220619
  26. VALACYCLOVIR HYDROCHLORIDE [Concomitant]
     Active Substance: VALACYCLOVIR HYDROCHLORIDE
     Indication: Infection prophylaxis
     Dosage: UNK
     Route: 065
     Dates: start: 20220619
  27. PREVYMIS [Concomitant]
     Active Substance: LETERMOVIR
     Indication: Infection prophylaxis
     Dosage: 1 UNIT, QD
     Route: 065
     Dates: start: 20220619
  28. DOLIPRANE [Concomitant]
     Active Substance: ACETAMINOPHEN
     Indication: Pain
     Dosage: 2 UNIT, QID
     Route: 065
     Dates: start: 20220428, end: 20220619

REACTIONS (4)
  - Death [Fatal]
  - Multiple organ dysfunction syndrome [Fatal]
  - Acute respiratory distress syndrome [Fatal]
  - Abdominal pain [Fatal]

NARRATIVE: CASE EVENT DATE: 20220618
